FAERS Safety Report 24459396 (Version 1)
Quarter: 2024Q4

REPORT INFORMATION
  Report Type: Spontaneous
  Country: BR (occurrence: BR)
  Receive Date: 20241018
  Receipt Date: 20241018
  Transmission Date: 20250115
  Serious: No
  Sender: ROCHE
  Company Number: BR-ROCHE-3533061

PATIENT
  Age: 24 Year
  Sex: Male

DRUGS (9)
  1. RITUXIMAB [Suspect]
     Active Substance: RITUXIMAB
     Indication: Grey zone lymphoma
     Dosage: 6 CYCLES
     Route: 065
     Dates: start: 2016
  2. VINCRISTINE [Suspect]
     Active Substance: VINCRISTINE
     Indication: Grey zone lymphoma
     Dosage: 6 CYCLES
     Route: 065
     Dates: start: 2016
  3. DOXORUBICIN [Suspect]
     Active Substance: DOXORUBICIN
     Indication: Grey zone lymphoma
     Dosage: 6 CYCLES
     Route: 065
     Dates: start: 2016
  4. CYCLOPHOSPHAMIDE [Suspect]
     Active Substance: CYCLOPHOSPHAMIDE
     Indication: Grey zone lymphoma
     Dosage: 6 CYCLES
     Route: 065
     Dates: start: 2016
  5. PREDNISONE [Suspect]
     Active Substance: PREDNISONE
     Indication: Grey zone lymphoma
     Dosage: 6 CYCLES
     Route: 065
     Dates: start: 2016
  6. IFOSFAMIDE [Suspect]
     Active Substance: IFOSFAMIDE
     Indication: Grey zone lymphoma
     Dosage: 6 CYCLES
     Route: 065
     Dates: start: 2016
  7. ETOPOSIDE [Suspect]
     Active Substance: ETOPOSIDE
     Indication: Grey zone lymphoma
     Dosage: 6 CYCLES
     Route: 065
     Dates: start: 2016
  8. CARBOPLATIN [Suspect]
     Active Substance: CARBOPLATIN
     Indication: Grey zone lymphoma
     Dosage: 6 CYCLES
     Route: 065
     Dates: start: 2016
  9. PEMBROLIZUMAB [Concomitant]
     Active Substance: PEMBROLIZUMAB
     Dosage: FREQUENCY TEXT:MONTHLY
     Dates: start: 201807

REACTIONS (1)
  - Disease progression [Recovered/Resolved]
